FAERS Safety Report 10147102 (Version 1)
Quarter: 2014Q2

REPORT INFORMATION
  Report Type: Report from Study
  Country: CA (occurrence: CA)
  Receive Date: 20140501
  Receipt Date: 20140501
  Transmission Date: 20141212
  Serious: Yes (Other)
  Sender: FDA-Public Use
  Company Number: CA-ABBVIE-14P-028-1229544-00

PATIENT
  Age: 52 Year
  Sex: 0

DRUGS (1)
  1. HUMIRA [Suspect]
     Indication: CROHN^S DISEASE
     Route: 058
     Dates: start: 20060803, end: 20140316

REACTIONS (2)
  - Benign neoplasm [Recovering/Resolving]
  - Arthralgia [Not Recovered/Not Resolved]
